FAERS Safety Report 8375533-6 (Version None)
Quarter: 2012Q1

REPORT INFORMATION
  Report Type: 
  Country: None (occurrence: None)
  Receive Date: 20120323
  Receipt Date: 20110124
  Transmission Date: 20120608
  Serious: Yes (Hospitalization)
  Sender: FDA-Public Use
  Company Number: 163-21880-11012604

PATIENT
  Age: 70 Year
  Sex: Male

DRUGS (8)
  1. RANITIDINE HYDROCHLORIDE [Concomitant]
  2. GARLIC (GARLIC) (CAPSULES) [Concomitant]
  3. DEXAMETHASONE [Concomitant]
  4. CALCIUM/MAG (CALCIUM W/MAGNESIUM) [Concomitant]
  5. REVLIMID [Suspect]
     Indication: MULTIPLE MYELOMA
     Dosage: 15 MG, FOR 21 DAYS, PO
     Route: 048
     Dates: start: 20101101
  6. ASCORBIC ACID [Concomitant]
  7. VITAMIN D [Concomitant]
  8. ZANTAC [Concomitant]

REACTIONS (2)
  - JOINT SWELLING [None]
  - PULMONARY EMBOLISM [None]
